FAERS Safety Report 13236885 (Version 2)
Quarter: 2017Q1

REPORT INFORMATION
  Report Type: Spontaneous
  Country: IT (occurrence: IT)
  Receive Date: 20170215
  Receipt Date: 20170220
  Transmission Date: 20170428
  Serious: Yes (Other)
  Sender: FDA-Public Use
  Company Number: IT-BRISTOL-MYERS SQUIBB COMPANY-BMS-2017-011770

PATIENT
  Age: 77 Year

DRUGS (3)
  1. ZOLOFT [Suspect]
     Active Substance: SERTRALINE HYDROCHLORIDE
     Indication: DEPRESSION
     Dosage: 1 U, QD
     Route: 048
     Dates: start: 20161101, end: 20161114
  2. ABILIFY [Suspect]
     Active Substance: ARIPIPRAZOLE
     Indication: DEPRESSION
     Dosage: 1 U, QD
     Route: 048
     Dates: start: 20161101, end: 20161114
  3. TAVOR (LORAZEPAM) [Suspect]
     Active Substance: LORAZEPAM
     Indication: ANXIETY
     Dosage: 1 U, QD
     Route: 048
     Dates: start: 20161101, end: 20161114

REACTIONS (5)
  - Head injury [Unknown]
  - Product use issue [Unknown]
  - Drop attacks [Unknown]
  - Vertigo [Recovering/Resolving]
  - Periorbital haemorrhage [Unknown]

NARRATIVE: CASE EVENT DATE: 20161114
